FAERS Safety Report 15922470 (Version 6)
Quarter: 2019Q2

REPORT INFORMATION
  Report Type: Spontaneous
  Country: DE (occurrence: DE)
  Receive Date: 20190206
  Receipt Date: 20190524
  Transmission Date: 20190711
  Serious: Yes (Other)
  Sender: FDA-Public Use
  Company Number: DE-AUROBINDO-AUR-APL-2019-002366

PATIENT

DRUGS (10)
  1. LETROZOLE. [Suspect]
     Active Substance: LETROZOLE
     Indication: BREAST CANCER METASTATIC
     Dosage: 2.5 MILLIGRAM, ONCE A DAY
     Route: 048
     Dates: start: 20180815
  2. KISQALI [Suspect]
     Active Substance: RIBOCICLIB
     Dosage: 200 MILLIGRAM, (14 DAYS, 14 DAYS PAUSE)
     Route: 048
     Dates: start: 20190221
  3. KISQALI [Suspect]
     Active Substance: RIBOCICLIB
     Dosage: 200 MILLIGRAM, DAILY, 200 MG, QD (14 DAYS, 14 DAYS PAUSE)
     Route: 048
     Dates: start: 20190227
  4. KISQALI [Suspect]
     Active Substance: RIBOCICLIB
     Indication: BREAST CANCER METASTATIC
     Dosage: 600 MG, UNK (21 DAYS, 7 DAYS PAUSE)
     Route: 048
     Dates: start: 20180815, end: 20180912
  5. KISQALI [Suspect]
     Active Substance: RIBOCICLIB
     Dosage: 600 MG, UNK (21 DAYS, 7 DAYS PAUSE)
     Route: 048
     Dates: start: 20181006, end: 20181106
  6. KISQALI [Suspect]
     Active Substance: RIBOCICLIB
     Dosage: 400 MG, UNK (21 DAYS, 7 DAYS PAUSE)
     Route: 048
     Dates: start: 20181010, end: 20181218
  7. KISQALI [Suspect]
     Active Substance: RIBOCICLIB
     Dosage: 200 MG, UNK (21 DAYS, 7 DAYS PAUSE)
     Route: 048
     Dates: start: 20181219, end: 20190220
  8. KISQALI [Suspect]
     Active Substance: RIBOCICLIB
     Dosage: 200 MILLIGRAM, (14 DAYS, 14 DAYS PAUSE)
     Route: 048
     Dates: start: 20190226
  9. KISQALI [Suspect]
     Active Substance: RIBOCICLIB
     Dosage: 600 MG, UNK (21 DAYS, 7 DAYS PAUSE)
     Route: 048
     Dates: start: 20181219
  10. KISQALI [Suspect]
     Active Substance: RIBOCICLIB
     Dosage: 400 MG, UNK (21 DAYS, 7 DAYS PAUSE)
     Route: 048
     Dates: start: 20181115, end: 20181218

REACTIONS (6)
  - Neutropenia [Recovering/Resolving]
  - Neutrophil count decreased [Recovering/Resolving]
  - Thrombocytopenia [Recovered/Resolved]
  - Leukopenia [Recovered/Resolved]
  - Bicytopenia [Recovering/Resolving]
  - White blood cell count decreased [Unknown]

NARRATIVE: CASE EVENT DATE: 20180905
